FAERS Safety Report 7656617-4 (Version None)
Quarter: 2011Q3

REPORT INFORMATION
  Report Type: 
  Country: None (occurrence: None)
  Receive Date: 20110804
  Receipt Date: 20110802
  Transmission Date: 20111222
  Serious: No
  Sender: FDA-Public Use
  Company Number: US-PFIZER INC-2011177452

PATIENT
  Sex: Female
  Weight: 59 kg

DRUGS (4)
  1. SERTRALINE HYDROCHLORIDE [Suspect]
     Indication: ANXIETY
     Dosage: 400 MG, DAILY
     Route: 048
     Dates: start: 20100101
  2. KLONOPIN [Concomitant]
     Indication: DEPRESSION
  3. SERTRALINE HYDROCHLORIDE [Suspect]
     Indication: DEPRESSION
  4. KLONOPIN [Concomitant]
     Indication: ANXIETY
     Dosage: 2 MG, DAILY
     Route: 048

REACTIONS (1)
  - INSOMNIA [None]
